FAERS Safety Report 10228651 (Version 2)
Quarter: 2014Q3

REPORT INFORMATION
  Report Type: Spontaneous
  Country: GR (occurrence: GR)
  Receive Date: 20140610
  Receipt Date: 20140808
  Transmission Date: 20150326
  Serious: Yes (Death)
  Sender: FDA-Public Use
  Company Number: GR-CELGENEUS-066-21880-14055161

PATIENT
  Age: 83 Year
  Sex: Female

DRUGS (8)
  1. REVLIMID [Suspect]
     Active Substance: LENALIDOMIDE
     Dosage: 10 MILLIGRAM
     Route: 048
     Dates: end: 20140211
  2. ARIXTRA [Concomitant]
     Active Substance: FONDAPARINUX SODIUM
     Indication: THROMBOSIS PROPHYLAXIS
     Route: 065
     Dates: start: 20110114, end: 20140319
  3. NEXIUM [Concomitant]
     Active Substance: ESOMEPRAZOLE MAGNESIUM
     Route: 048
     Dates: start: 20110414
  4. ARIXTRA [Concomitant]
     Active Substance: FONDAPARINUX SODIUM
     Route: 048
     Dates: start: 20110414
  5. NEXIUM [Concomitant]
     Active Substance: ESOMEPRAZOLE MAGNESIUM
     Indication: GASTRITIS PROPHYLAXIS
     Route: 065
     Dates: start: 20110114
  6. REVLIMID [Suspect]
     Active Substance: LENALIDOMIDE
     Indication: PLASMA CELL MYELOMA
     Dosage: 10 MILLIGRAM
     Route: 048
     Dates: start: 20110726, end: 20140114
  7. NEXIUM [Concomitant]
     Active Substance: ESOMEPRAZOLE MAGNESIUM
     Route: 048
     Dates: start: 20110526
  8. ARIXTRA [Concomitant]
     Active Substance: FONDAPARINUX SODIUM
     Route: 048
     Dates: start: 20110526

REACTIONS (3)
  - Cardiac arrest [Fatal]
  - Cardiac failure [Fatal]
  - Sepsis [Fatal]

NARRATIVE: CASE EVENT DATE: 20140312
